FAERS Safety Report 7633749-8 (Version None)
Quarter: 2011Q3

REPORT INFORMATION
  Report Type: 
  Country: None (occurrence: None)
  Receive Date: 20110725
  Receipt Date: 20110712
  Transmission Date: 20111222
  Serious: Yes (Hospitalization, Other)
  Sender: FDA-Public Use
  Company Number: US-CELGENEUS-163-21880-11071204

PATIENT
  Sex: Female

DRUGS (10)
  1. AMLODIPINE [Concomitant]
     Route: 065
  2. ASPIR-81 [Concomitant]
     Route: 065
  3. LOVAZA [Concomitant]
     Route: 065
  4. BENAZEPRIL HYDROCHLORIDE [Concomitant]
     Route: 065
  5. HYDROCODONE BITARTRATE AND ACETAMINOPHEN [Concomitant]
     Route: 065
  6. SERTRALINE HYDROCHLORIDE [Concomitant]
     Route: 065
  7. REVLIMID [Suspect]
     Dosage: 10 MILLIGRAM
     Route: 048
     Dates: start: 20110511
  8. SENNA [Concomitant]
     Route: 065
  9. COD LIVER OIL [Concomitant]
     Route: 065
  10. GABAPENTIN [Concomitant]
     Route: 065

REACTIONS (5)
  - FULL BLOOD COUNT DECREASED [None]
  - DRY MOUTH [None]
  - WEIGHT DECREASED [None]
  - DECREASED APPETITE [None]
  - OESOPHAGEAL DISORDER [None]
